FAERS Safety Report 18433745 (Version 1)
Quarter: 2020Q4

REPORT INFORMATION
  Report Type: Spontaneous
  Country: CN (occurrence: CN)
  Receive Date: 20201027
  Receipt Date: 20201027
  Transmission Date: 20210114
  Serious: Yes (Other)
  Sender: FDA-Public Use
  Company Number: CN-IGSA-BIG0011768

PATIENT
  Age: 77 Year
  Sex: Male
  Weight: 42.5 kg

DRUGS (1)
  1. ALBUTEIN [Suspect]
     Active Substance: ALBUMIN HUMAN
     Indication: HYPOPROTEINAEMIA
     Dosage: 10 GRAM, SINGLE
     Route: 042
     Dates: start: 20201013, end: 20201013

REACTIONS (6)
  - Hyperhidrosis [Recovered/Resolved]
  - Frequent bowel movements [Recovered/Resolved]
  - Chest discomfort [Recovered/Resolved]
  - Sense of oppression [Recovered/Resolved]
  - Toothache [Recovered/Resolved]
  - Blood pressure increased [Recovered/Resolved]

NARRATIVE: CASE EVENT DATE: 20201013
